FAERS Safety Report 18081005 (Version 1)
Quarter: 2020Q3

REPORT INFORMATION
  Report Type: Spontaneous
  Country: US (occurrence: US)
  Receive Date: 20200728
  Receipt Date: 20200728
  Transmission Date: 20201103
  Serious: No
  Sender: FDA-Public Use
  Company Number: US-ASTRAZENECA-2020SE90355

PATIENT
  Age: 26379 Day
  Sex: Female
  Weight: 88 kg

DRUGS (1)
  1. FASLODEX [Suspect]
     Active Substance: FULVESTRANT
     Indication: BREAST CANCER FEMALE
     Route: 030
     Dates: start: 20200521

REACTIONS (5)
  - Malaise [Unknown]
  - Infusion site rash [Unknown]
  - Urticaria [Unknown]
  - Rash erythematous [Unknown]
  - Diarrhoea [Unknown]

NARRATIVE: CASE EVENT DATE: 20200521
